FAERS Safety Report 20377765 (Version 2)
Quarter: 2022Q1

REPORT INFORMATION
  Report Type: Other
  Country: GB (occurrence: GB)
  Receive Date: 20220126
  Receipt Date: 20220131
  Transmission Date: 20220423
  Serious: Yes (Life-Threatening)
  Sender: FDA-Public Use
  Company Number: GB-CELLTRION INC.-2022GB000802

PATIENT

DRUGS (5)
  1. INFLIXIMAB [Suspect]
     Active Substance: INFLIXIMAB
     Indication: Product used for unknown indication
     Dosage: UNK
     Route: 042
     Dates: start: 20211230, end: 20211230
  2. DIPROBASE [PARAFFIN, LIQUID;WHITE SOFT PARAFFIN] [Concomitant]
     Dosage: APPLY
     Dates: start: 20211102
  3. FUCIDIN H [Concomitant]
     Dosage: 1 DF, 2X/DAY
     Dates: start: 20211101
  4. HYDROCORTISONE [Concomitant]
     Active Substance: HYDROCORTISONE
     Dosage: 2 DF, QD
     Dates: start: 20211202
  5. SODIUM FEREDETATE [Concomitant]
     Active Substance: SODIUM FEREDETATE
     Dosage: 15 ML, QD
     Dates: start: 20211117

REACTIONS (3)
  - Oxygen saturation decreased [Recovered/Resolved]
  - Flushing [Recovered/Resolved]
  - Vomiting [Recovered/Resolved]

NARRATIVE: CASE EVENT DATE: 20211230
